FAERS Safety Report 9322553 (Version 1)
Quarter: 2013Q2

REPORT INFORMATION
  Report Type: Spontaneous
  Country: BR (occurrence: BR)
  Receive Date: 20130531
  Receipt Date: 20130531
  Transmission Date: 20140414
  Serious: Yes (Other)
  Sender: FDA-Public Use
  Company Number: BR-ASTRAZENECA-2013SE37652

PATIENT
  Age: 87 Year
  Sex: Male

DRUGS (2)
  1. BRILINTA [Suspect]
     Indication: MYOCARDIAL INFARCTION
     Route: 048
  2. PULMICORT RESPULES [Suspect]
     Indication: PNEUMONIA
     Dosage: 0.25 MG/ML
     Route: 055
     Dates: start: 201304

REACTIONS (2)
  - Pneumonia [Recovering/Resolving]
  - Off label use [Not Recovered/Not Resolved]
